FAERS Safety Report 12281987 (Version 1)
Quarter: 2016Q2

REPORT INFORMATION
  Report Type: Spontaneous
  Country: US (occurrence: None)
  Receive Date: 20160418
  Receipt Date: 20160418
  Transmission Date: 20160815
  Serious: No
  Sender: FDA-Public Use
  Company Number: None

PATIENT
  Age: 55 Year
  Sex: Female

DRUGS (8)
  1. ALLEGRA [Concomitant]
     Active Substance: FEXOFENADINE HYDROCHLORIDE
  2. ARIMIDEX [Concomitant]
     Active Substance: ANASTROZOLE
  3. IBRANCE [Suspect]
     Active Substance: PALBOCICLIB
     Indication: BREAST CANCER
     Dosage: 125MG  1 DAILY X 21D;7D OFF PO
     Route: 048
     Dates: start: 20160329
  4. ASTEPRO [Concomitant]
     Active Substance: AZELASTINE HYDROCHLORIDE
  5. TOPROL XL [Concomitant]
     Active Substance: METOPROLOL SUCCINATE
  6. NASACORT ALR SPR [Concomitant]
  7. FASLODEX [Concomitant]
     Active Substance: FULVESTRANT
  8. XGEVA [Concomitant]
     Active Substance: DENOSUMAB

REACTIONS (3)
  - Nausea [None]
  - White blood cell count decreased [None]
  - Fatigue [None]

NARRATIVE: CASE EVENT DATE: 20160413
